FAERS Safety Report 17795854 (Version 2)
Quarter: 2021Q2

REPORT INFORMATION
  Report Type: Spontaneous
  Country: FR (occurrence: FR)
  Receive Date: 20200516
  Receipt Date: 20210519
  Transmission Date: 20210716
  Serious: Yes (Death, Hospitalization)
  Sender: FDA-Public Use
  Company Number: FR-ACCORD-182078

PATIENT
  Age: 64 Year
  Sex: Female
  Weight: 71 kg

DRUGS (5)
  1. CISPLATIN. [Suspect]
     Active Substance: CISPLATIN
     Indication: LUNG ADENOCARCINOMA
     Dosage: C1 13/12/2019: C2 06/01/2019: C3 27/01/2020 (10% REDUCTION): C4?17/02/2020 (20% REDUCTION)
     Route: 041
     Dates: start: 20191213, end: 20200217
  2. ORAL [Concomitant]
     Dosage: STRENGTH:10 MG / 10 MG TABLET
     Dates: start: 20100101, end: 20191210
  3. PEMETREXED. [Suspect]
     Active Substance: PEMETREXED
     Indication: LUNG ADENOCARCINOMA
     Dosage: C1 13/12/2019  C2 06/01/2019 C3 27/01/2020 C4 17/02/2020
     Route: 041
     Dates: start: 20191213, end: 20200217
  4. COVERAM [Concomitant]
     Active Substance: AMLODIPINE\PERINDOPRIL
     Dosage: STRENGTH:10 MG / 10 MG TABLET
     Route: 048
     Dates: start: 20100101, end: 20191210
  5. PEMBROLIZUMAB. [Suspect]
     Active Substance: PEMBROLIZUMAB
     Indication: LUNG ADENOCARCINOMA
     Dosage: C1 13/12/2019 C2 06/01/2019 C3 27/01/2020 C4 17/02/2020
     Route: 041

REACTIONS (3)
  - Pancytopenia [Unknown]
  - Renal tubular necrosis [Unknown]
  - Henoch-Schonlein purpura [Unknown]

NARRATIVE: CASE EVENT DATE: 20200309
